FAERS Safety Report 19133833 (Version 1)
Quarter: 2021Q2

REPORT INFORMATION
  Report Type: Spontaneous
  Country: US (occurrence: US)
  Receive Date: 20210414
  Receipt Date: 20210414
  Transmission Date: 20210717
  Serious: Yes (Hospitalization)
  Sender: FDA-Public Use
  Company Number: None

PATIENT
  Age: 53 Year
  Sex: Female

DRUGS (1)
  1. MYCOPHENOLATE 250MG ROXANE [Suspect]
     Active Substance: MYCOPHENOLATE MOFETIL
     Indication: RENAL TRANSPLANT
     Route: 048
     Dates: start: 201904

REACTIONS (5)
  - Nausea [None]
  - Pyrexia [None]
  - Vomiting [None]
  - COVID-19 [None]
  - Chills [None]

NARRATIVE: CASE EVENT DATE: 20210113
